FAERS Safety Report 20902518 (Version 1)
Quarter: 2022Q2

REPORT INFORMATION
  Report Type: Spontaneous
  Country: TR (occurrence: TR)
  Receive Date: 20220601
  Receipt Date: 20220601
  Transmission Date: 20220721
  Serious: Yes (Hospitalization)
  Sender: FDA-Public Use
  Company Number: TR-ENDO PHARMACEUTICALS INC-2022-003244

PATIENT
  Age: 13 Day
  Sex: Female
  Weight: .74 kg

DRUGS (9)
  1. COLY-MYCIN M [Suspect]
     Active Substance: COLISTIMETHATE SODIUM
     Indication: Acinetobacter infection
     Dosage: 5 MG/KG/DAY, UNKNOWN
     Route: 065
  2. COLY-MYCIN M [Suspect]
     Active Substance: COLISTIMETHATE SODIUM
     Indication: Necrotising enterocolitis neonatal
  3. CAFFEINE [Suspect]
     Active Substance: CAFFEINE
     Indication: Product used for unknown indication
     Dosage: UNK UNKNOWN, UNKNOWN
     Route: 065
  4. NETILMICIN [Suspect]
     Active Substance: NETILMICIN
     Indication: Acinetobacter infection
     Dosage: 2.6 MG/KG/DAY, UNKNOWN
     Route: 065
  5. NETILMICIN [Suspect]
     Active Substance: NETILMICIN
     Indication: Necrotising enterocolitis neonatal
  6. VANCOMYCIN [Suspect]
     Active Substance: VANCOMYCIN
     Indication: Necrotising enterocolitis neonatal
     Dosage: 20 MG/KG/DAY, UNKNOWN
     Route: 065
  7. AMIKACIN [Suspect]
     Active Substance: AMIKACIN
     Indication: Necrotising enterocolitis neonatal
     Dosage: 10 MG/KG/DAY, UNKNOWN
     Route: 065
  8. METRONIDAZOLE [Suspect]
     Active Substance: METRONIDAZOLE
     Indication: Necrotising enterocolitis neonatal
     Dosage: 7.5 MG/KG/DAY, UNKNOWN
     Route: 065
  9. SURFACTANT [Concomitant]
     Indication: Product used for unknown indication
     Dosage: UNK UNKNOWN, UNKNOWN
     Route: 065

REACTIONS (1)
  - Pseudo-Bartter syndrome [Recovered/Resolved]
